FAERS Safety Report 9991482 (Version 1)
Quarter: 2014Q1

REPORT INFORMATION
  Report Type: Report from Study
  Country: US (occurrence: US)
  Receive Date: 20140310
  Receipt Date: 20140310
  Transmission Date: 20141002
  Serious: No
  Sender: FDA-Public Use
  Company Number: US-ABBVIE-13P-163-1133589-00

PATIENT
  Age: 21 Year
  Sex: Female

DRUGS (5)
  1. HUMIRA [Suspect]
     Indication: CROHN^S DISEASE
     Route: 058
     Dates: start: 20130805, end: 20130805
  2. HUMIRA [Suspect]
     Route: 058
     Dates: start: 20130812, end: 20130812
  3. HUMIRA [Suspect]
     Route: 058
  4. 6-MP [Concomitant]
     Indication: COLITIS ULCERATIVE
     Dosage: 75 NG DAILY
     Route: 048
  5. UCERIS [Concomitant]
     Indication: COLITIS ULCERATIVE
     Route: 048

REACTIONS (2)
  - Muscular weakness [Not Recovered/Not Resolved]
  - Local swelling [Not Recovered/Not Resolved]
